FAERS Safety Report 10217073 (Version 1)
Quarter: 2014Q1

REPORT INFORMATION
  Report Type: Spontaneous
  Country: US (occurrence: None)
  Receive Date: 20140306
  Receipt Date: 20140306
  Transmission Date: 20141002
  Serious: Yes (Other)
  Sender: FDA-Public Use
  Company Number: 163-21880-13045035

PATIENT
  Age: 56 Year
  Sex: Male
  Weight: 97.07 kg

DRUGS (11)
  1. REVLIMID (LENALIDOMIDE) (CAPSULES) [Suspect]
     Indication: PLASMA CELL MYELOMA
     Route: 048
     Dates: start: 201011
  2. ALLOPURINOL (ALLOPURINOL) [Concomitant]
  3. DOXEPIN HCL (DOXEPIN HYDROCHLORIDE) [Concomitant]
  4. FAMOTIDINE (FAMOTIDINE) (TABLETS) [Concomitant]
  5. FLUTICASONE PROPIONATE (FLUTICASONE PROPIONATE) [Concomitant]
  6. FUROSEMIDE (FUROSEMIDE) (TABLETS) [Concomitant]
  7. GABAPENTIN (GABAPENTIN) [Concomitant]
  8. K-TAB (POTASSIUM CHLORIDE) (TABLETS) [Concomitant]
  9. LYRICA (PREGABALIN) (CAPSULES) [Concomitant]
  10. METOPROLOL SUCCINATE (METOPROLOL SUCCINATE) [Concomitant]
  11. OXCARBAZEPINE (OXCARBAZEPINE) [Concomitant]

REACTIONS (1)
  - Sinusitis [None]
